FAERS Safety Report 19972201 (Version 1)
Quarter: 2021Q4

REPORT INFORMATION
  Report Type: Spontaneous
  Country: US (occurrence: US)
  Receive Date: 20211018
  Receipt Date: 20211018
  Transmission Date: 20220303
  Serious: No
  Sender: FDA-Public Use
  Company Number: None

PATIENT
  Age: 34 Year
  Sex: Female

DRUGS (1)
  1. BOTOX [Suspect]
     Active Substance: ONABOTULINUMTOXINA
     Dosage: ?          OTHER STRENGTH:100UNIT;OTHER DOSE:100UNITS;
     Route: 030
     Dates: start: 202110

REACTIONS (1)
  - Off label use [None]

NARRATIVE: CASE EVENT DATE: 20211018
